FAERS Safety Report 9555180 (Version 1)
Quarter: 2013Q3

REPORT INFORMATION
  Report Type: Spontaneous
  Country: US (occurrence: None)
  Receive Date: 20130821
  Receipt Date: 20130821
  Transmission Date: 20140515
  Serious: Yes (Other)
  Sender: FDA-Public Use
  Company Number: 2013-001504

PATIENT
  Age: 36 Year
  Sex: Female
  Weight: 53.5 kg

DRUGS (1)
  1. LO LOESTRIN FE [Suspect]
     Indication: CONTRACEPTION
     Dosage: 1 PILL; REQUENCY UNSPECIFIED, ORAL
     Route: 048
     Dates: start: 201211, end: 201304

REACTIONS (1)
  - Pulmonary embolism [None]
